FAERS Safety Report 7501622-1 (Version None)
Quarter: 2011Q2

REPORT INFORMATION
  Report Type: 
  Country: None (occurrence: None)
  Receive Date: 20110524
  Receipt Date: 20110513
  Transmission Date: 20111010
  Serious: Yes (Hospitalization)
  Sender: FDA-Public Use
  Company Number: US-WATSON-2011-06625

PATIENT
  Age: 5 Year
  Sex: Female

DRUGS (1)
  1. CYCLOSPORINE [Suspect]
     Indication: APLASTIC ANAEMIA
     Dosage: 150 MG, BID
     Route: 048
     Dates: start: 20110511, end: 20110512

REACTIONS (4)
  - NEUTROPENIA [None]
  - PYREXIA [None]
  - THROAT IRRITATION [None]
  - OFF LABEL USE [None]
